FAERS Safety Report 12459831 (Version 2)
Quarter: 2016Q2

REPORT INFORMATION
  Report Type: Spontaneous
  Country: AR (occurrence: AR)
  Receive Date: 20160613
  Receipt Date: 20160616
  Transmission Date: 20160815
  Serious: Yes (Hospitalization, Other)
  Sender: FDA-Public Use
  Company Number: AR-PFIZER INC-2016287788

PATIENT
  Age: 65 Year
  Sex: Female

DRUGS (1)
  1. SUTENT [Suspect]
     Active Substance: SUNITINIB MALATE
     Indication: METASTATIC RENAL CELL CARCINOMA
     Dosage: 37.5 MG, DAILY
     Dates: start: 20160214

REACTIONS (7)
  - Cough [Recovering/Resolving]
  - Agitation [Recovered/Resolved]
  - Effusion [Recovering/Resolving]
  - Pulmonary oedema [Recovering/Resolving]
  - Malaise [Recovering/Resolving]
  - Rash macular [Recovering/Resolving]
  - Bronchitis [Unknown]

NARRATIVE: CASE EVENT DATE: 2016
